FAERS Safety Report 6464172-X (Version None)
Quarter: 2009Q4

REPORT INFORMATION
  Report Type: 
  Country: None (occurrence: None)
  Receive Date: 20091110
  Receipt Date: 20090717
  Transmission Date: 20100525
  Serious: No
  Sender: FDA-Public Use
  Company Number: 1000007577

PATIENT
  Age: 43 Year
  Sex: Female
  Weight: 43.0917 kg

DRUGS (6)
  1. SAVELLA [Suspect]
     Indication: FIBROMYALGIA
     Dosage: 12.5 MG (12.5 MG, 1 IN 1 D), ORAL : 25 MG (12.5 MG, 2 IN 1 D), ORAL :  50 MG (25 MG, 2 IN 1 D), ORAL
     Route: 048
     Dates: start: 20090610, end: 20090610
  2. SAVELLA [Suspect]
     Indication: FIBROMYALGIA
     Dosage: 12.5 MG (12.5 MG, 1 IN 1 D), ORAL : 25 MG (12.5 MG, 2 IN 1 D), ORAL :  50 MG (25 MG, 2 IN 1 D), ORAL
     Route: 048
     Dates: start: 20090611, end: 20090612
  3. SAVELLA [Suspect]
     Indication: FIBROMYALGIA
     Dosage: 12.5 MG (12.5 MG, 1 IN 1 D), ORAL : 25 MG (12.5 MG, 2 IN 1 D), ORAL :  50 MG (25 MG, 2 IN 1 D), ORAL
     Route: 048
     Dates: start: 20090613, end: 20090616
  4. SAVELLA [Suspect]
     Indication: FIBROMYALGIA
     Dosage: 100 MG (50 MG, 2 IN 1 D), ORAL
     Route: 048
     Dates: start: 20090617, end: 20090624
  5. ELAVIL [Concomitant]
  6. DARVOCET [Concomitant]

REACTIONS (1)
  - LETHARGY [None]
